FAERS Safety Report 5495951-3 (Version None)
Quarter: 2007Q4

REPORT INFORMATION
  Report Type: 
  Country: None (occurrence: None)
  Receive Date: 20071025
  Receipt Date: 20070319
  Transmission Date: 20080405
  Serious: No
  Sender: FDA-Public Use
  Company Number: A0633233A

PATIENT
  Sex: Male

DRUGS (4)
  1. ADVAIR DISKUS 100/50 [Suspect]
     Indication: CHRONIC OBSTRUCTIVE PULMONARY DISEASE
     Dosage: 1PUFF TWICE PER DAY
     Route: 055
     Dates: start: 20030725
  2. AVODART [Concomitant]
  3. SINGULAIR [Concomitant]
  4. MULTI-VITAMIN [Concomitant]

REACTIONS (3)
  - CANDIDIASIS [None]
  - DYSPHONIA [None]
  - OSTEOPOROSIS [None]
